FAERS Safety Report 17655707 (Version 3)
Quarter: 2022Q3

REPORT INFORMATION
  Report Type: Spontaneous
  Country: FR (occurrence: FR)
  Receive Date: 20200410
  Receipt Date: 20220714
  Transmission Date: 20221027
  Serious: No
  Sender: FDA-Public Use
  Company Number: FR-GLAXOSMITHKLINE-FR2020060218

PATIENT

DRUGS (2)
  1. NICOTINELL [Suspect]
     Active Substance: NICOTINE
     Indication: Smoking cessation therapy
     Dosage: 2 MG, U
  2. NICOTINELL [Suspect]
     Active Substance: NICOTINE
     Dosage: 1 MG, U

REACTIONS (3)
  - Nicotine dependence [Unknown]
  - Product use issue [Unknown]
  - Product availability issue [Unknown]
